FAERS Safety Report 14191646 (Version 2)
Quarter: 2017Q4

REPORT INFORMATION
  Report Type: Other
  Country: US (occurrence: US)
  Receive Date: 20171115
  Receipt Date: 20171219
  Transmission Date: 20180321
  Serious: Yes (Other)
  Sender: FDA-Public Use
  Company Number: US-INTERCEPT-PMOCA2017001377

PATIENT

DRUGS (3)
  1. OCALIVA [Suspect]
     Active Substance: OBETICHOLIC ACID
     Dosage: 10 MG, QD
     Dates: start: 201705, end: 201708
  2. URSO [Concomitant]
     Active Substance: URSODIOL
     Dosage: UNK
  3. OCALIVA [Suspect]
     Active Substance: OBETICHOLIC ACID
     Indication: BILIARY CIRRHOSIS PRIMARY
     Dosage: 5 MG, QD
     Dates: start: 20170224, end: 201705

REACTIONS (2)
  - Blood bilirubin increased [Unknown]
  - Jaundice [Unknown]

NARRATIVE: CASE EVENT DATE: 201708
